FAERS Safety Report 7459931-0 (Version None)
Quarter: 2011Q2

REPORT INFORMATION
  Report Type: 
  Country: None (occurrence: None)
  Receive Date: 20110504
  Receipt Date: 20110504
  Transmission Date: 20111010
  Serious: No
  Sender: FDA-Public Use
  Company Number: None

PATIENT
  Age: 62 Year
  Sex: Female

DRUGS (2)
  1. RECLAST [Suspect]
     Route: 042
     Dates: start: 20110412
  2. EVISTA CALCIUM [Concomitant]

REACTIONS (2)
  - HYPOAESTHESIA [None]
  - PAIN [None]
